FAERS Safety Report 9248056 (Version 1)
Quarter: 2013Q1

REPORT INFORMATION
  Report Type: Spontaneous
  Country: US (occurrence: None)
  Receive Date: 20130305
  Receipt Date: 20130305
  Transmission Date: 20140127
  Serious: Yes (Other)
  Sender: FDA-Public Use
  Company Number: 163-21880-12101480

PATIENT
  Age: 67 Year
  Sex: Male

DRUGS (6)
  1. REVLIMID [Suspect]
     Indication: PLASMA CELL MYELOMA
     Dosage: 25 MG, 14 IN 14 D, PO
     Route: 048
     Dates: start: 20111017, end: 201203
  2. LEVAQUIN (LEVOFLOXACIN) [Concomitant]
     Dates: start: 201203
  3. MUCINEX (GUAIFENESIN) [Concomitant]
  4. ALBUTEROL (SALBUTAMOL) [Concomitant]
  5. CHOLESTEROL MEDICATION (OTHER CHOLESTEROL AND TRIGLYCERIDE REDUCERS) [Concomitant]
  6. COREG (CARVEDILOL) [Concomitant]

REACTIONS (6)
  - Thrombosis [None]
  - Nausea [None]
  - Malaise [None]
  - Decreased appetite [None]
  - Nasopharyngitis [None]
  - Abdominal discomfort [None]
